FAERS Safety Report 8866247 (Version 1)
Quarter: 2012Q4

REPORT INFORMATION
  Report Type: 
  Country: US (occurrence: US)
  Receive Date: 20121025
  Receipt Date: 20121025
  Transmission Date: 20130627
  Serious: Yes (Other)
  Sender: FDA-Public Use
  Company Number: US-JNJFOC-20121007983

PATIENT
  Sex: Male
  Weight: 136.08 kg

DRUGS (10)
  1. INVEGA SUSTENNA [Suspect]
     Indication: SCHIZOPHRENIA
     Route: 030
     Dates: start: 201110
  2. INVEGA SUSTENNA [Suspect]
     Indication: BIPOLAR DISORDER
     Route: 030
     Dates: start: 201110
  3. SEROQUEL XR [Concomitant]
     Indication: SCHIZOPHRENIA
     Route: 048
  4. SEROQUEL XR [Concomitant]
     Indication: SCHIZOPHRENIA
     Route: 048
  5. SEROQUEL XR [Concomitant]
     Indication: BIPOLAR DISORDER
     Route: 048
  6. SEROQUEL XR [Concomitant]
     Indication: BIPOLAR DISORDER
     Route: 048
  7. ATIVAN [Concomitant]
     Indication: SLEEP DISORDER
     Route: 048
  8. NEURONTIN [Concomitant]
     Indication: PAIN
     Dosage: 900mg/capsule/300mg/twice

daily/oral
     Route: 048
  9. DEPAKOTE [Concomitant]
     Indication: BIPOLAR DISORDER
     Dosage: 900mg/capsule
     Route: 048
  10. STRATTERA [Concomitant]
     Indication: PRODUCT USED FOR UNKNOWN INDICATION
     Dosage: 900mg/capsule
     Route: 048

REACTIONS (2)
  - Injection site infection [Not Recovered/Not Resolved]
  - Injection site reaction [Not Recovered/Not Resolved]
